FAERS Safety Report 18625070 (Version 1)
Quarter: 2020Q4

REPORT INFORMATION
  Report Type: Spontaneous
  Country: ES (occurrence: ES)
  Receive Date: 20201217
  Receipt Date: 20201217
  Transmission Date: 20210114
  Serious: Yes (Hospitalization, Other)
  Sender: FDA-Public Use
  Company Number: ES-B.I. PHARMACEUTICALS,INC./RIDGEFIELD-2020-BI-068050

PATIENT
  Age: 51 Year
  Sex: Female
  Weight: 80 kg

DRUGS (10)
  1. TRAJENTA [Suspect]
     Active Substance: LINAGLIPTIN
     Indication: TYPE 2 DIABETES MELLITUS
     Dosage: 2.5 MG  EVERY 12 HOURS
     Route: 065
     Dates: start: 20171127, end: 20181019
  2. OZEMPIC [Suspect]
     Active Substance: SEMAGLUTIDE
     Indication: PRODUCT USED FOR UNKNOWN INDICATION
     Dosage: 1 DOSE OF 0.5 MG EVERY 7 DAYS?0,5MG 1 PLUMA PRECARGADA 1,5ML SOLUCION INYECTABLE
     Route: 065
     Dates: start: 20190705, end: 20190924
  3. OZEMPIC [Suspect]
     Active Substance: SEMAGLUTIDE
     Dosage: 1 DOSE OF 1 MG EVERY 7 DAYS?1MG 1 PLUMA PRECARGADA 1,5ML SOLUCION INYECTABLE
     Route: 065
     Dates: start: 20190924
  4. EUTIROX [Concomitant]
     Active Substance: LEVOTHYROXINE SODIUM
     Indication: GOITRE
  5. EUTIROX [Concomitant]
     Active Substance: LEVOTHYROXINE SODIUM
     Indication: THYROIDECTOMY
     Dosage: 1 TABLET EVERY DAY
     Route: 065
     Dates: start: 20190109
  6. METFORMINA [METFORMIN] [Concomitant]
     Active Substance: METFORMIN HYDROCHLORIDE
     Indication: TYPE 2 DIABETES MELLITUS
     Dosage: 1000 MG EVERY 12 HOURS
     Route: 065
     Dates: start: 20151112
  7. LANTUS [Concomitant]
     Active Substance: INSULIN GLARGINE
     Indication: TYPE 2 DIABETES MELLITUS
     Dosage: (30-80) IU AT BREAKFAST
     Route: 065
  8. VICTOZA [Concomitant]
     Active Substance: LIRAGLUTIDE
     Indication: PRODUCT USED FOR UNKNOWN INDICATION
     Dosage: 1.2 MG EVERY DAY
     Route: 065
     Dates: start: 20181019, end: 20190705
  9. EMPAGLIFLOZIN [Concomitant]
     Active Substance: EMPAGLIFLOZIN
     Indication: TYPE 2 DIABETES MELLITUS
     Dosage: 5 MG EVERY 12 HOURS
     Route: 065
     Dates: start: 20181019
  10. SITAGLIPTINA [SITAGLIPTIN] [Suspect]
     Active Substance: SITAGLIPTIN
     Indication: PRODUCT USED FOR UNKNOWN INDICATION
     Dosage: 50 MG EVERY 12 HOURS
     Route: 065
     Dates: start: 20170829, end: 20171127

REACTIONS (1)
  - Pancreatic neuroendocrine tumour [Recovered/Resolved]

NARRATIVE: CASE EVENT DATE: 20190705
